FAERS Safety Report 6681280-9 (Version None)
Quarter: 2010Q2

REPORT INFORMATION
  Report Type: 
  Country: None (occurrence: None)
  Receive Date: 20100414
  Receipt Date: 20100409
  Transmission Date: 20101027
  Serious: Yes (Hospitalization, Other)
  Sender: FDA-Public Use
  Company Number: FR-SANOFI-AVENTIS-2010SA003119

PATIENT
  Age: 3 Year
  Sex: Male

DRUGS (1)
  1. DESMOPRESSIN ACETATE [Suspect]
     Route: 048
     Dates: start: 20090901

REACTIONS (3)
  - ATRIAL THROMBOSIS [None]
  - DEEP VEIN THROMBOSIS [None]
  - VENA CAVA THROMBOSIS [None]
